FAERS Safety Report 4947712-9 (Version None)
Quarter: 2006Q1

REPORT INFORMATION
  Report Type: 
  Country: None (occurrence: None)
  Receive Date: 20060314
  Receipt Date: 20060301
  Transmission Date: 20060701
  Serious: Yes (Disabling)
  Sender: FDA-Public Use
  Company Number: 2006030853

PATIENT
  Age: 72 Year
  Sex: Female
  Weight: 54.8852 kg

DRUGS (5)
  1. LYRICA [Suspect]
     Indication: FACIAL SPASM
     Dosage: 200 MG (100 MG, 2 IN 1 D),
     Dates: start: 20051201
  2. PLAVIX [Concomitant]
  3. ATENOLOL [Concomitant]
  4. FOSAMAX [Concomitant]
  5. CENTRUM SILVER (ASCORBIC ACID, CALCIUM, MINERALS NOS, RETINOL, TOCOPHE [Concomitant]

REACTIONS (5)
  - FATIGUE [None]
  - FEELING COLD [None]
  - INFLUENZA [None]
  - PHARYNGOLARYNGEAL PAIN [None]
  - WEIGHT DECREASED [None]
